FAERS Safety Report 10137655 (Version 1)
Quarter: 2014Q2

REPORT INFORMATION
  Report Type: Spontaneous
  Country: US (occurrence: None)
  Receive Date: 20140428
  Receipt Date: 20140428
  Transmission Date: 20141212
  Serious: No
  Sender: FDA-Public Use
  Company Number: None

PATIENT
  Age: 46 Year
  Sex: Male
  Weight: 70.76 kg

DRUGS (1)
  1. MEDROL [Suspect]
     Indication: ARTHRALGIA
     Dosage: 4 PILLS FIRST DAY ON LABEL FOR DAY TAKEN BY MOUTH
     Route: 048
     Dates: start: 20140414, end: 20140419

REACTIONS (2)
  - Rash [None]
  - Dyspepsia [None]
